FAERS Safety Report 6855194-5 (Version None)
Quarter: 2010Q3

REPORT INFORMATION
  Report Type: 
  Country: None (occurrence: None)
  Receive Date: 20100717
  Receipt Date: 20081125
  Transmission Date: 20110219
  Serious: Yes (Other)
  Sender: FDA-Public Use
  Company Number: US-PFIZER INC-2007108501

PATIENT
  Sex: Male
  Weight: 79.365 kg

DRUGS (1)
  1. CHANTIX [Suspect]
     Indication: SMOKING CESSATION THERAPY
     Dosage: 1 MG, 2X/DAY
     Route: 048
     Dates: start: 20070717, end: 20070906

REACTIONS (5)
  - AGGRESSION [None]
  - ASTHENIA [None]
  - BLOOD PRESSURE INCREASED [None]
  - DEPRESSION [None]
  - HEADACHE [None]
